FAERS Safety Report 14275174 (Version 1)
Quarter: 2017Q4

REPORT INFORMATION
  Report Type: Spontaneous
  Country: TR (occurrence: TR)
  Receive Date: 20171212
  Receipt Date: 20171212
  Transmission Date: 20180321
  Serious: Yes (Death, Hospitalization)
  Sender: FDA-Public Use
  Company Number: TR-INGENUS PHARMACEUTICALS NJ, LLC-ING201712-000664

PATIENT
  Age: 54 Year
  Sex: Male
  Weight: 65 kg

DRUGS (4)
  1. CARISOPRODOL AND ASPIRIN [Suspect]
     Active Substance: ASPIRIN\CARISOPRODOL
  2. ENOXAPARIN [Suspect]
     Active Substance: ENOXAPARIN
  3. ENOXAPARIN [Suspect]
     Active Substance: ENOXAPARIN
     Indication: PROPHYLAXIS
  4. TICAGRELOR. [Suspect]
     Active Substance: TICAGRELOR

REACTIONS (5)
  - Hypoxic-ischaemic encephalopathy [Not Recovered/Not Resolved]
  - Septic shock [Fatal]
  - Pulmonary alveolar haemorrhage [Not Recovered/Not Resolved]
  - Haemoptysis [Recovered/Resolved]
  - Haemoglobin decreased [Not Recovered/Not Resolved]
